FAERS Safety Report 15745870 (Version 1)
Quarter: 2018Q4

REPORT INFORMATION
  Report Type: Spontaneous
  Country: US (occurrence: US)
  Receive Date: 20181217
  Receipt Date: 20181217
  Transmission Date: 20190205
  Serious: No
  Sender: FDA-Public Use
  Company Number: None

PATIENT
  Sex: Male

DRUGS (1)
  1. HUMIRA [Suspect]
     Active Substance: ADALIMUMAB
     Indication: FUNCTIONAL GASTROINTESTINAL DISORDER
     Dosage: DAY 1 STARTER
     Route: 058
     Dates: start: 20181208

REACTIONS (1)
  - Device malfunction [None]
